FAERS Safety Report 6195289-5 (Version None)
Quarter: 2009Q2

REPORT INFORMATION
  Report Type: 
  Country: None (occurrence: None)
  Receive Date: 20090519
  Receipt Date: 20090504
  Transmission Date: 20091009
  Serious: Yes (Death, Life-Threatening, Other)
  Sender: FDA-Public Use
  Company Number: IT-GENENTECH-283065

PATIENT

DRUGS (7)
  1. RITUXIMAB [Suspect]
     Indication: B-CELL LYMPHOMA
     Dosage: 375 MG/M2, Q3W
     Route: 065
  2. FLUDARABINE PHOSPHATE [Suspect]
     Indication: B-CELL LYMPHOMA
     Dosage: 25 MG/M2, Q3W
     Route: 065
  3. BLEOMYCIN SULFATE [Suspect]
     Indication: B-CELL LYMPHOMA
     Dosage: 5 MG/M2, Q4W
     Route: 065
  4. EPIRUBICIN [Suspect]
     Indication: B-CELL LYMPHOMA
     Dosage: 30 MG/M2, Q4W
     Route: 065
  5. CYCLOPHOSPHAMIDE [Suspect]
     Indication: B-CELL LYMPHOMA
     Dosage: 650 MG/M2, Q4W
     Route: 065
  6. VINCRISTINE [Suspect]
     Indication: B-CELL LYMPHOMA
     Dosage: 1.4 MG, Q4W
     Route: 065
  7. PREDNISONE [Suspect]
     Indication: B-CELL LYMPHOMA
     Dosage: 100 MG/M2, Q4W
     Route: 065

REACTIONS (4)
  - CARDIOTOXICITY [None]
  - DEATH [None]
  - DISEASE PROGRESSION [None]
  - INFECTION [None]
